FAERS Safety Report 19622535 (Version 2)
Quarter: 2021Q3

REPORT INFORMATION
  Report Type: Report from Study
  Country: US (occurrence: US)
  Receive Date: 20210728
  Receipt Date: 20210812
  Transmission Date: 20211014
  Serious: Yes (Hospitalization, Other)
  Sender: FDA-Public Use
  Company Number: US-TG THERAPEUTICS INC.-UTX-VN207-202101854

PATIENT
  Age: 56 Year
  Sex: Male
  Weight: 66.67 kg

DRUGS (9)
  1. OXYCODONE IR [Concomitant]
     Active Substance: OXYCODONE
     Indication: ABDOMINAL PAIN
     Dosage: 5 MILLIGRAM, Q4H, PRN
     Route: 048
     Dates: start: 20200228
  2. OXYCODONE ER [Concomitant]
     Active Substance: OXYCODONE
     Indication: ABDOMINAL PAIN
     Dosage: 30 MILLIGRAM Q12H
     Route: 048
     Dates: start: 20210119
  3. ONDANSETRON [Concomitant]
     Active Substance: ONDANSETRON
     Indication: NAUSEA
     Dosage: 4 MILLIGRAM, Q8H, PRN
     Route: 048
     Dates: start: 20200228
  4. ALLOPURINOL. [Concomitant]
     Active Substance: ALLOPURINOL
     Indication: TUMOUR LYSIS SYNDROME
     Dosage: 300 MILLIGRAM, QD
     Route: 048
     Dates: start: 20210117
  5. VENETOCLAX. [Suspect]
     Active Substance: VENETOCLAX
     Indication: CHRONIC LYMPHOCYTIC LEUKAEMIA
     Dosage: 20 MILLIGRAM, QD
     Route: 048
     Dates: start: 20210120, end: 20210120
  6. UMBRALISIB [Suspect]
     Active Substance: UMBRALISIB
     Indication: CHRONIC LYMPHOCYTIC LEUKAEMIA
     Dosage: 800 MILLIGRAM, QD
     Route: 048
     Dates: start: 20201019, end: 20210110
  7. UBLITUXIMAB [Suspect]
     Active Substance: UBLITUXIMAB
     Indication: CHRONIC LYMPHOCYTIC LEUKAEMIA
     Dosage: 900 MILLIGRAM
     Route: 042
     Dates: start: 20201019, end: 20201214
  8. VENETOCLAX. [Suspect]
     Active Substance: VENETOCLAX
     Dosage: 20 MILLIGRAM, QD
     Dates: start: 20210126
  9. OXYCODONE IR [Concomitant]
     Active Substance: OXYCODONE
     Dosage: 10 MILLIGRAM, PRN Q4H
     Route: 048
     Dates: start: 20210119

REACTIONS (3)
  - Abdominal pain [Recovered/Resolved]
  - Abdominal pain [Recovered/Resolved]
  - Abdominal distension [Recovered/Resolved]

NARRATIVE: CASE EVENT DATE: 20210115
